FAERS Safety Report 9770089 (Version 2)
Quarter: 2013Q4

REPORT INFORMATION
  Report Type: Spontaneous
  Country: US (occurrence: US)
  Receive Date: 20131218
  Receipt Date: 20131218
  Transmission Date: 20140711
  Serious: No
  Sender: FDA-Public Use
  Company Number: US-VERTEX PHARMACEUTICALS INC-AE-2011-000895

PATIENT
  Sex: 0

DRUGS (6)
  1. INCIVEK [Suspect]
     Indication: HEPATITIS C
     Route: 048
     Dates: start: 20110716
  2. INTERFERON [Concomitant]
     Indication: HEPATITIS C
     Route: 058
     Dates: start: 20110715
  3. RIBAVIRIN [Concomitant]
     Indication: HEPATITIS C
     Route: 048
     Dates: start: 20110716
  4. AMBIEN [Concomitant]
     Indication: INSOMNIA
     Route: 048
  5. LEXAPRO [Concomitant]
     Route: 048
  6. DEXALANT [Concomitant]
     Route: 048

REACTIONS (1)
  - Local swelling [Recovered/Resolved]
